FAERS Safety Report 4945817-X (Version None)
Quarter: 2006Q1

REPORT INFORMATION
  Report Type: 
  Country: None (occurrence: None)
  Receive Date: 20060316
  Receipt Date: 20060307
  Transmission Date: 20060701
  Serious: Yes (Other)
  Sender: FDA-Public Use
  Company Number: 2006UW04198

PATIENT
  Sex: Male

DRUGS (4)
  1. SEROQUEL [Suspect]
     Dosage: 6 TABS DAILY
     Route: 048
     Dates: start: 20060118
  2. SEROQUEL [Suspect]
     Dosage: 8 TABS DAILY
     Route: 048
  3. RISPERIDONE [Concomitant]
     Route: 048
     Dates: start: 20060118
  4. FLUOXETINE HCL [Concomitant]
     Route: 048
     Dates: start: 20060118

REACTIONS (1)
  - ALOPECIA [None]
